FAERS Safety Report 15143390 (Version 1)
Quarter: 2018Q3

REPORT INFORMATION
  Report Type: Report from Study
  Country: AU (occurrence: AU)
  Receive Date: 20180713
  Receipt Date: 20180713
  Transmission Date: 20181010
  Serious: Yes (Other)
  Sender: FDA-Public Use
  Company Number: AU-SA-2018SA183884

PATIENT

DRUGS (1)
  1. ALEMTUZUMAB [Suspect]
     Active Substance: ALEMTUZUMAB
     Indication: MULTIPLE SCLEROSIS
     Route: 041

REACTIONS (7)
  - Hyperthyroidism [Unknown]
  - Gingival bleeding [Unknown]
  - Platelet count decreased [Unknown]
  - Viral infection [Unknown]
  - Palpitations [Unknown]
  - Neutropenia [Unknown]
  - Immune thrombocytopenic purpura [Recovered/Resolved]
